FAERS Safety Report 5422649-X (Version None)
Quarter: 2007Q3

REPORT INFORMATION
  Report Type: 
  Country: None (occurrence: None)
  Receive Date: 20070822
  Receipt Date: 20070815
  Transmission Date: 20080115
  Serious: Yes (Hospitalization)
  Sender: FDA-Public Use
  Company Number: US-SANOFI-SYNTHELABO-D01200705553

PATIENT
  Sex: Female
  Weight: 74.7 kg

DRUGS (13)
  1. PRILOSEC [Concomitant]
  2. LEXAPRO [Concomitant]
  3. POTASSIUM CHLORIDE [Concomitant]
  4. BENTYL [Concomitant]
  5. HYDROCHLOROTHIAZIDE [Concomitant]
  6. TOPROL-XL [Concomitant]
  7. ZOFRAN [Concomitant]
  8. XANAX [Concomitant]
  9. AVASTIN [Suspect]
     Dates: start: 20070813, end: 20070813
  10. LEUCOVORIN CALCIUM [Suspect]
     Route: 042
     Dates: start: 20070813, end: 20070813
  11. FLUOROURACIL [Suspect]
     Dosage: 400 MG/M?, IV BOLUS D1+D2 FOLLOWED BY 5-FU 2400 MG/M? OVER 46-HOUR CONTINUOUS INFUSION.
     Route: 042
     Dates: start: 20070813, end: 20070813
  12. OXALIPLATIN [Suspect]
     Route: 042
     Dates: start: 20070813, end: 20070813
  13. SR57746 OR PLACEBO [Suspect]
     Indication: NEUROLOGICAL SYMPTOM
     Route: 048
     Dates: start: 20070224, end: 20070814

REACTIONS (5)
  - AMNESIA [None]
  - ARTHRALGIA [None]
  - BLOOD PRESSURE DIASTOLIC DECREASED [None]
  - MUSCULOSKELETAL CHEST PAIN [None]
  - SYNCOPE [None]
